FAERS Safety Report 8533019-X (Version None)
Quarter: 2012Q3

REPORT INFORMATION
  Report Type: 
  Country: None (occurrence: None)
  Receive Date: 20120712
  Receipt Date: 20120702
  Transmission Date: 20120928
  Serious: Yes (Other)
  Sender: FDA-Public Use
  Company Number: DSU-2012-05328

PATIENT
  Age: 50 Year
  Sex: Female
  Weight: 59.8748 kg

DRUGS (4)
  1. PLAQUENIL (HYDROXYCHLOROQUINE)(HYDROXYCHLOROQUINE) [Concomitant]
  2. UNSPECIFIED BIOIDENTICAL HORMONE THERAPY (INGREDIENTS UNKNOWN)(HORMONE [Concomitant]
  3. SYNTHROID (LEVOTHYROXINE SODIUM)(LEVOTHYROXINE SODIUM) [Concomitant]
  4. EVOXAC [Suspect]
     Indication: SJOGREN'S SYNDROME
     Dosage: 30 MG (30 MG,QD),PER ORAL
     Route: 048
     Dates: start: 20040101, end: 20120501

REACTIONS (20)
  - ALTERED VISUAL DEPTH PERCEPTION [None]
  - IMPAIRED DRIVING ABILITY [None]
  - DEAFNESS [None]
  - DIARRHOEA [None]
  - UTERINE LEIOMYOMA [None]
  - DYSURIA [None]
  - DRY EYE [None]
  - CONDITION AGGRAVATED [None]
  - UTERINE DILATION AND CURETTAGE [None]
  - TINNITUS [None]
  - HYPERHIDROSIS [None]
  - HOT FLUSH [None]
  - ANXIETY [None]
  - PANIC ATTACK [None]
  - INSOMNIA [None]
  - WEIGHT DECREASED [None]
  - ABDOMINAL PAIN UPPER [None]
  - DRY MOUTH [None]
  - HERPES ZOSTER [None]
  - DYSKINESIA [None]
